FAERS Safety Report 5294941-3 (Version None)
Quarter: 2007Q2

REPORT INFORMATION
  Report Type: 
  Country: None (occurrence: None)
  Receive Date: 20070412
  Receipt Date: 20060925
  Transmission Date: 20071010
  Serious: Yes (Other)
  Sender: FDA-Public Use
  Company Number: 200614879EU

PATIENT
  Age: 51 Year
  Sex: Female

DRUGS (1)
  1. NICORETTE [Suspect]
     Indication: SMOKING CESSATION THERAPY
     Route: 002
     Dates: start: 19960101

REACTIONS (4)
  - CHEST PAIN [None]
  - DEPENDENCE [None]
  - INTENTIONAL OVERDOSE [None]
  - PAIN IN EXTREMITY [None]
